FAERS Safety Report 8520679-2 (Version None)
Quarter: 2012Q3

REPORT INFORMATION
  Report Type: 
  Country: None (occurrence: None)
  Receive Date: 20120705
  Receipt Date: 20120623
  Transmission Date: 20120928
  Serious: Yes (Other)
  Sender: FDA-Public Use
  Company Number: 2012SP032387

PATIENT
  Age: 31 Year
  Weight: 55 kg

DRUGS (1)
  1. NUVARING [Suspect]
     Indication: CONTRACEPTION
     Dosage: VAG
     Route: 067
     Dates: start: 20090101, end: 20120612

REACTIONS (3)
  - PREGNANCY WITH CONTRACEPTIVE DEVICE [None]
  - ABORTION [None]
  - MATERNAL EXPOSURE DURING PREGNANCY [None]
